FAERS Safety Report 10710397 (Version 1)
Quarter: 2015Q1

REPORT INFORMATION
  Report Type: Spontaneous
  Country: IT (occurrence: IT)
  Receive Date: 20150114
  Receipt Date: 20150114
  Transmission Date: 20150721
  Serious: Yes (Other)
  Sender: FDA-Public Use
  Company Number: IT-SA-2015SA003638

PATIENT
  Age: 88 Year
  Sex: Female

DRUGS (5)
  1. LASIX [Suspect]
     Active Substance: FUROSEMIDE
     Route: 048
     Dates: start: 20140901, end: 20150109
  2. FOLINA [Concomitant]
     Active Substance: FOLIC ACID
  3. CARDIOASPIRIN [Concomitant]
     Active Substance: ASPIRIN
  4. TRIATEC [Suspect]
     Active Substance: RAMIPRIL
     Indication: BLOOD PRESSURE
     Route: 048
     Dates: start: 20140101, end: 20150108
  5. NORVASC [Suspect]
     Active Substance: AMLODIPINE BESYLATE
     Dosage: STRENGTH: 10 MG
     Route: 048
     Dates: start: 20140101, end: 20150108

REACTIONS (1)
  - Syncope [Recovering/Resolving]

NARRATIVE: CASE EVENT DATE: 20150108
